FAERS Safety Report 15728757 (Version 1)
Quarter: 2018Q4

REPORT INFORMATION
  Report Type: Spontaneous
  Country: SE (occurrence: SE)
  Receive Date: 20181217
  Receipt Date: 20181217
  Transmission Date: 20190205
  Serious: Yes (Life-Threatening)
  Sender: FDA-Public Use
  Company Number: PHHY2018SE186686

PATIENT
  Age: 54 Year
  Sex: Female

DRUGS (1)
  1. MYCOPHENOLATE MOFETIL SANDOZ [Suspect]
     Active Substance: MYCOPHENOLATE MOFETIL
     Indication: PRODUCT USED FOR UNKNOWN INDICATION
     Dosage: UNK
     Route: 065
     Dates: end: 20171107

REACTIONS (16)
  - Mood swings [Unknown]
  - Pain [Unknown]
  - Hyperhidrosis [Unknown]
  - Personality change [Unknown]
  - Anger [Unknown]
  - Chills [Unknown]
  - Obsessive thoughts [Unknown]
  - Personality disorder [Unknown]
  - Suicidal ideation [Unknown]
  - Dissociative identity disorder [Unknown]
  - Insomnia [Unknown]
  - Headache [Unknown]
  - Intentional self-injury [Unknown]
  - Diarrhoea [Unknown]
  - Suicidal behaviour [Unknown]
  - Mania [Unknown]

NARRATIVE: CASE EVENT DATE: 20180806
